FAERS Safety Report 7322690-6 (Version None)
Quarter: 2011Q1

REPORT INFORMATION
  Report Type: 
  Country: None (occurrence: None)
  Receive Date: 20110301
  Receipt Date: 20091117
  Transmission Date: 20110831
  Serious: No
  Sender: FDA-Public Use
  Company Number: US-PFIZER INC-2009299626

PATIENT
  Sex: Female

DRUGS (1)
  1. GLUCOTROL [Suspect]
     Dosage: UNK

REACTIONS (1)
  - BLOOD CREATININE INCREASED [None]
